FAERS Safety Report 17976895 (Version 1)
Quarter: 2020Q3

REPORT INFORMATION
  Report Type: Report from Study
  Country: FR (occurrence: FR)
  Receive Date: 20200702
  Receipt Date: 20200702
  Transmission Date: 20201103
  Serious: Yes (Other)
  Sender: FDA-Public Use
  Company Number: FR-ASTRAZENECA-2020SE76639

PATIENT
  Age: 4142 Day
  Sex: Male
  Weight: 26 kg

DRUGS (1)
  1. SELUMETINIB. [Suspect]
     Active Substance: SELUMETINIB
     Indication: NEUROFIBROMATOSIS
     Route: 048
     Dates: start: 20200212, end: 20200606

REACTIONS (1)
  - Paronychia [Recovering/Resolving]

NARRATIVE: CASE EVENT DATE: 20200516
